FAERS Safety Report 6446436-9 (Version None)
Quarter: 2009Q4

REPORT INFORMATION
  Report Type: 
  Country: None (occurrence: None)
  Receive Date: 20091119
  Receipt Date: 20091111
  Transmission Date: 20100525
  Serious: Yes (Other)
  Sender: FDA-Public Use
  Company Number: CA-ABBOTT-09P-028-0608266-00

PATIENT
  Sex: Male

DRUGS (9)
  1. LUPRON DEPOT [Suspect]
     Indication: PROSTATE CANCER
     Dates: start: 20060711
  2. EZETROL [Concomitant]
     Indication: DRUG USE FOR UNKNOWN INDICATION
  3. TRAZODOL [Concomitant]
     Indication: DRUG USE FOR UNKNOWN INDICATION
  4. LIPITOR [Concomitant]
     Indication: DRUG USE FOR UNKNOWN INDICATION
  5. MAVIK [Concomitant]
     Indication: DRUG USE FOR UNKNOWN INDICATION
  6. METFORMIN HCL [Concomitant]
     Indication: DRUG USE FOR UNKNOWN INDICATION
     Dosage: 2 TABS AM/QHS AND 1 TAB 1 LUNCH
  7. AVENDIA [Concomitant]
     Indication: DRUG USE FOR UNKNOWN INDICATION
  8. APO-RANIDINE [Concomitant]
     Indication: DRUG USE FOR UNKNOWN INDICATION
  9. TRAZADOL [Concomitant]
     Indication: DRUG USE FOR UNKNOWN INDICATION

REACTIONS (3)
  - ANAEMIA [None]
  - ATRIAL FIBRILLATION [None]
  - DYSURIA [None]
